FAERS Safety Report 25143482 (Version 1)
Quarter: 2025Q2

REPORT INFORMATION
  Report Type: Spontaneous
  Country: FR (occurrence: FR)
  Receive Date: 20250401
  Receipt Date: 20250401
  Transmission Date: 20250717
  Serious: Yes (Hospitalization, Other)
  Sender: AUROBINDO
  Company Number: FR-AFSSAPS-RS2025000275

PATIENT
  Age: 84 Year
  Sex: Female
  Weight: 62 kg

DRUGS (2)
  1. CEFTRIAXONE [Suspect]
     Active Substance: CEFTRIAXONE
     Indication: Aspiration
     Dosage: 1 GRAM, ONCE A DAY
     Route: 042
     Dates: start: 20240911, end: 20240913
  2. METRONIDAZOLE [Suspect]
     Active Substance: METRONIDAZOLE
     Indication: Aspiration
     Dosage: 500 MILLIGRAM, 3 TIMES A DAY
     Route: 042
     Dates: start: 20240911, end: 20240913

REACTIONS (2)
  - Erythema multiforme [Unknown]
  - Target skin lesion [Unknown]

NARRATIVE: CASE EVENT DATE: 20240913
